FAERS Safety Report 8448185-4 (Version None)
Quarter: 2012Q2

REPORT INFORMATION
  Report Type: 
  Country: None (occurrence: None)
  Receive Date: 20120613
  Receipt Date: 20120529
  Transmission Date: 20120825
  Serious: Yes (Disabling, Other)
  Sender: FDA-Public Use
  Company Number: HCTZ20120008

PATIENT
  Age: 59 Year
  Sex: Male

DRUGS (2)
  1. SILDENAFIL CITRATE [Suspect]
     Indication: PRODUCT USED FOR UNKNOWN INDICATION
     Dosage: 50 MG
  2. HYDROCHLOROTHIAZIDE [Suspect]
     Indication: HYPERTENSION

REACTIONS (8)
  - MUSCULAR WEAKNESS [None]
  - HYPOTENSION [None]
  - DRUG INTERACTION [None]
  - DIZZINESS [None]
  - PARAPLEGIA [None]
  - SPINAL CORD INFARCTION [None]
  - WHEELCHAIR USER [None]
  - VISION BLURRED [None]
